FAERS Safety Report 6073085-7 (Version None)
Quarter: 2009Q1

REPORT INFORMATION
  Report Type: 
  Country: None (occurrence: None)
  Receive Date: 20090211
  Receipt Date: 20090205
  Transmission Date: 20090719
  Serious: Yes (Hospitalization)
  Sender: FDA-Public Use
  Company Number: US-JNJFOC-20090202207

PATIENT
  Age: 64 Year
  Sex: Female

DRUGS (3)
  1. LEVAQUIN [Suspect]
     Indication: DRUG USE FOR UNKNOWN INDICATION
     Route: 065
  2. PREVICID [Concomitant]
     Indication: GASTROOESOPHAGEAL REFLUX DISEASE
     Route: 048
  3. FOSAMAX [Concomitant]
     Indication: BONE DENSITY DECREASED
     Route: 048

REACTIONS (3)
  - GAIT DISTURBANCE [None]
  - MENISCUS LESION [None]
  - MUSCULAR WEAKNESS [None]
